FAERS Safety Report 20748534 (Version 2)
Quarter: 2022Q3

REPORT INFORMATION
  Report Type: Spontaneous
  Country: US (occurrence: US)
  Receive Date: 20220426
  Receipt Date: 20220929
  Transmission Date: 20221027
  Serious: No
  Sender: FDA-Public Use
  Company Number: US-Calliditas-2022CAL00041

PATIENT
  Age: 61 Year
  Sex: Female

DRUGS (16)
  1. TARPEYO [Suspect]
     Active Substance: BUDESONIDE
     Indication: IgA nephropathy
     Dosage: 16 MG ONCE DAILY
     Route: 050
     Dates: start: 20220325
  2. LOSARTAN [Concomitant]
     Active Substance: LOSARTAN
     Dates: start: 202102, end: 202103
  3. LOSARTAN [Concomitant]
     Active Substance: LOSARTAN
     Dates: start: 202103, end: 202104
  4. LOSARTAN [Concomitant]
     Active Substance: LOSARTAN
     Dates: start: 202104, end: 202106
  5. LOSARTAN [Concomitant]
     Active Substance: LOSARTAN
     Dates: start: 202206
  6. METOPROLOL SUCCINATE [Concomitant]
     Active Substance: METOPROLOL SUCCINATE
     Dates: start: 20210409, end: 20210412
  7. METOPROLOL SUCCINATE [Concomitant]
     Active Substance: METOPROLOL SUCCINATE
     Dates: start: 20210413, end: 20210415
  8. METOPROLOL SUCCINATE [Concomitant]
     Active Substance: METOPROLOL SUCCINATE
     Dates: start: 20210416
  9. PANTOPRAZOLE [Concomitant]
     Active Substance: PANTOPRAZOLE
  10. PRAVASTATIN [Concomitant]
     Active Substance: PRAVASTATIN
  11. CALCIUM ACETATE [Concomitant]
     Active Substance: CALCIUM ACETATE
     Dosage: TIME INTERVAL:
  12. ESTRADIOL [Concomitant]
     Active Substance: ESTRADIOL
  13. FISH OIL [Concomitant]
     Active Substance: FISH OIL
     Dates: start: 202103
  14. KERENDIA [Concomitant]
     Active Substance: FINERENONE
     Dosage: INCREASED FROM 10 MG TO 20 MG IN DEC-2021
     Dates: start: 202112
  15. MINERALS\VITAMINS [Concomitant]
     Active Substance: MINERALS\VITAMINS
     Dates: start: 2011
  16. TORSEMIDE [Concomitant]
     Active Substance: TORSEMIDE
     Indication: Peripheral swelling
     Dates: start: 20220802

REACTIONS (5)
  - Nasopharyngitis [Recovered/Resolved]
  - Oropharyngeal pain [Recovered/Resolved]
  - Ear pain [Recovered/Resolved]
  - Hypersomnia [Recovered/Resolved]
  - Somnolence [Unknown]

NARRATIVE: CASE EVENT DATE: 20220401
